FAERS Safety Report 12486186 (Version 2)
Quarter: 2016Q2

REPORT INFORMATION
  Report Type: Report from Study
  Country: US (occurrence: US)
  Receive Date: 20160621
  Receipt Date: 20160623
  Transmission Date: 20160815
  Serious: Yes (Hospitalization, Other)
  Sender: FDA-Public Use
  Company Number: US-ABBVIE-16K-163-1651356-00

PATIENT
  Age: 84 Year
  Sex: Male
  Weight: 77.18 kg

DRUGS (1)
  1. HUMIRA [Suspect]
     Active Substance: ADALIMUMAB
     Indication: RHEUMATOID ARTHRITIS
     Route: 058
     Dates: start: 2004, end: 20160428

REACTIONS (9)
  - Fall [Recovered/Resolved]
  - Fall [Recovered/Resolved]
  - Dyspnoea [Not Recovered/Not Resolved]
  - Cerebrovascular accident [Not Recovered/Not Resolved]
  - Central nervous system lymphoma [Not Recovered/Not Resolved]
  - Heart rate irregular [Not Recovered/Not Resolved]
  - Skin cancer [Recovered/Resolved]
  - Urinary tract infection [Recovering/Resolving]
  - Head injury [Recovered/Resolved]

NARRATIVE: CASE EVENT DATE: 2016
